FAERS Safety Report 4857016-0 (Version None)
Quarter: 2005Q4

REPORT INFORMATION
  Report Type: 
  Country: None (occurrence: None)
  Receive Date: 20051219
  Receipt Date: 20041213
  Transmission Date: 20060501
  Serious: No
  Sender: FDA-Public Use
  Company Number: US-GLAXOSMITHKLINE-A0537017A

PATIENT
  Age: 48 Year
  Sex: Female

DRUGS (1)
  1. NICODERM CQ [Suspect]

REACTIONS (5)
  - ABNORMAL DREAMS [None]
  - APPLICATION SITE ERYTHEMA [None]
  - APPLICATION SITE IRRITATION [None]
  - CHEMICAL POISONING [None]
  - DRY MOUTH [None]
